FAERS Safety Report 8080609-7 (Version None)
Quarter: 2012Q1

REPORT INFORMATION
  Report Type: 
  Country: None (occurrence: None)
  Receive Date: 20120130
  Receipt Date: 20120124
  Transmission Date: 20120608
  Serious: Yes (Hospitalization)
  Sender: FDA-Public Use
  Company Number: JP-CELGENEUS-087-21880-11023106

PATIENT
  Sex: Male

DRUGS (67)
  1. VELCADE [Concomitant]
     Dosage: 7.78 MILLIGRAM/SQ. METER
     Route: 041
     Dates: start: 20110201, end: 20110211
  2. LASIX [Concomitant]
     Indication: CARDIAC FAILURE
     Dosage: 120 MILLIGRAM
     Route: 041
     Dates: start: 20101218, end: 20101229
  3. FUNGUARD [Concomitant]
     Indication: PROPHYLAXIS
     Dosage: 150 MILLIGRAM
     Route: 041
     Dates: start: 20101224, end: 20110104
  4. ASPIRIN [Concomitant]
     Indication: PROPHYLAXIS
     Dosage: 100 MILLIGRAM
     Route: 048
     Dates: start: 20101220, end: 20110110
  5. ISODINE GARGLE [Concomitant]
     Indication: PROPHYLAXIS
     Dosage: Q.I
     Route: 048
     Dates: start: 20110111, end: 20110307
  6. REVLIMID [Suspect]
     Dosage: 25 MILLIGRAM
     Route: 048
     Dates: start: 20110111, end: 20110124
  7. DEXAMETHASONE ACETATE [Suspect]
     Indication: MULTIPLE MYELOMA
     Dosage: 20 MILLIGRAM
     Route: 048
     Dates: start: 20110223, end: 20110223
  8. DEXAMETHASONE ACETATE [Suspect]
     Dosage: 40 MILLIGRAM
     Route: 048
     Dates: start: 20110726, end: 20110729
  9. VELCADE [Concomitant]
     Dosage: 7.78 MILLIGRAM/SQ. METER
     Route: 041
     Dates: start: 20110222, end: 20110304
  10. GANCICLOVIR [Concomitant]
     Indication: PROPHYLAXIS
     Dosage: 125 MILLIGRAM
     Route: 041
     Dates: start: 20101224, end: 20101224
  11. KAYTWO N [Concomitant]
     Dosage: 10 MILLIGRAM
     Route: 041
     Dates: start: 20101224, end: 20101229
  12. ALLOPURINOL [Concomitant]
     Indication: PROPHYLAXIS
     Dosage: 200 MILLIGRAM
     Route: 048
     Dates: start: 20101216, end: 20101220
  13. CHLORPROMAZINE HCL [Concomitant]
     Dosage: 10 MILLIGRAM
     Route: 048
     Dates: start: 20101219, end: 20101225
  14. SEROQUEL [Concomitant]
     Dosage: 50 MILLIGRAM
     Route: 048
     Dates: start: 20101225, end: 20101225
  15. REVLIMID [Suspect]
     Dosage: 25 MILLIGRAM
     Route: 048
     Dates: start: 20110222, end: 20110307
  16. FUNGIZONE [Concomitant]
     Indication: PROPHYLAXIS
     Dosage: 16 MILLILITER
     Route: 048
     Dates: start: 20101216, end: 20110110
  17. IMMUNE GLOBULIN NOS [Concomitant]
     Indication: PROPHYLAXIS
     Dosage: ADEQUATE DOSE
     Route: 062
     Dates: start: 20101216, end: 20110110
  18. NOVAMIN [Concomitant]
     Indication: PROPHYLAXIS
     Dosage: 15 MILLIGRAM
     Route: 048
     Dates: start: 20101216, end: 20110110
  19. DEXAMETHASONE [Concomitant]
     Dosage: 66 MILLIGRAM
     Route: 041
     Dates: start: 20110222, end: 20110304
  20. DEXAMETHASONE ACETATE [Suspect]
     Dosage: 20 MILLIGRAM
     Route: 048
     Dates: start: 20110302, end: 20110302
  21. DEXAMETHASONE ACETATE [Suspect]
     Dosage: 40 MILLIGRAM
     Route: 048
     Dates: start: 20110824, end: 20110827
  22. VELCADE [Concomitant]
     Indication: MULTIPLE MYELOMA
     Dosage: 1.3 MILLIGRAM/SQ. METER
     Route: 041
     Dates: start: 20101221, end: 20101221
  23. VELCADE [Concomitant]
     Dosage: 7.78 MILLIGRAM/SQ. METER
     Route: 041
     Dates: start: 20110111, end: 20110121
  24. KYTRIL [Concomitant]
     Indication: PROPHYLAXIS
     Dosage: 3 MILLIGRAM
     Route: 041
     Dates: start: 20101221, end: 20101228
  25. KYTRIL [Concomitant]
     Dosage: 6 MILLIGRAM
     Route: 041
     Dates: start: 20110111, end: 20110304
  26. IMMUNE GLOBULIN NOS [Concomitant]
     Dosage: QI
     Route: 062
     Dates: start: 20110111, end: 20110307
  27. PURSENNID [Concomitant]
     Dosage: 24 MILLIGRAM
     Route: 048
     Dates: start: 20101216, end: 20110110
  28. OMEPRAZOLE [Concomitant]
     Indication: PROPHYLAXIS
     Dosage: 20 MILLIGRAM
     Route: 048
     Dates: start: 20110111, end: 20110307
  29. ZOVIRAX [Concomitant]
     Indication: PROPHYLAXIS
     Dosage: 200 MILLIGRAM
     Route: 048
     Dates: start: 20110111, end: 20110307
  30. REVLIMID [Suspect]
     Dosage: 25 MILLIGRAM
     Route: 048
     Dates: start: 20110726, end: 20110808
  31. DEXAMETHASONE ACETATE [Suspect]
     Indication: REFRACTORY CANCER
     Dosage: 20 MILLIGRAM
     Route: 048
     Dates: start: 20110226, end: 20110226
  32. DEXAMETHASONE ACETATE [Suspect]
     Dosage: 20 MILLIGRAM
     Route: 048
     Dates: start: 20110305, end: 20110305
  33. DEXAMETHASONE ACETATE [Suspect]
     Dosage: 40 MILLIGRAM
     Route: 048
     Dates: start: 20110628, end: 20110701
  34. DEXAMETHASONE SODIUM PHOSPHATE [Concomitant]
     Indication: MULTIPLE MYELOMA
     Dosage: 16.5 MILLIGRAM
     Route: 041
     Dates: start: 20101221, end: 20101221
  35. VELCADE [Concomitant]
     Indication: REFRACTORY CANCER
     Dosage: 1.3 MILLIGRAM/SQ. METER
     Route: 041
     Dates: start: 20101228, end: 20101228
  36. FUNGIZONE [Concomitant]
     Dosage: 16 MILLILITER
     Route: 048
     Dates: start: 20110111, end: 20110307
  37. NOVAMIN [Concomitant]
     Dosage: 15 MILLIGRAM
     Route: 048
     Dates: start: 20110111, end: 20110307
  38. DESYREL [Concomitant]
     Dosage: 50 MILLIGRAM
     Route: 048
     Dates: start: 20101222, end: 20110307
  39. ACETAMINOPHEN [Concomitant]
     Dosage: 400 MILLIGRAM
     Route: 048
     Dates: start: 20101223, end: 20101224
  40. KENEI G [Concomitant]
     Dosage: 60 MILLILITER
     Route: 065
     Dates: start: 20101230, end: 20110103
  41. DEXAMETHASONE [Concomitant]
     Indication: MULTIPLE MYELOMA
     Dosage: 132 MILLIGRAM
     Route: 041
     Dates: start: 20110111, end: 20110121
  42. REVLIMID [Suspect]
     Dosage: 25 MILLIGRAM
     Route: 048
     Dates: start: 20110628, end: 20110718
  43. OXYCONTIN [Concomitant]
     Dosage: 10 MILLIGRAM
     Route: 048
     Dates: start: 20101216, end: 20110110
  44. LECICARBON [Concomitant]
     Dosage: 1
     Route: 065
     Dates: start: 20101226, end: 20110307
  45. REVLIMID [Suspect]
     Indication: REFRACTORY CANCER
     Dosage: 5 MILLIGRAM
     Route: 048
     Dates: start: 20101222, end: 20101228
  46. REVLIMID [Suspect]
     Dosage: 25 MILLIGRAM
     Route: 048
     Dates: start: 20110824, end: 20110913
  47. DEXAMETHASONE SODIUM PHOSPHATE [Concomitant]
     Indication: REFRACTORY CANCER
     Dosage: 16.5 MILLIGRAM
     Route: 041
     Dates: start: 20101228, end: 20101228
  48. ROCEPHIN [Concomitant]
     Indication: PROPHYLAXIS
     Dosage: 1 GRAM
     Route: 041
     Dates: start: 20101223, end: 20101224
  49. JU-KAMA [Concomitant]
     Indication: PROPHYLAXIS
     Dosage: 2 GRAM
     Route: 048
     Dates: start: 20101216, end: 20110110
  50. OXINORM [Concomitant]
     Dosage: 5 MILLIGRAM
     Route: 048
     Dates: start: 20101216, end: 20101229
  51. OXYCONTIN [Concomitant]
     Dosage: 10 MILLIGRAM
     Route: 048
     Dates: start: 20110111, end: 20110307
  52. PURSENNID [Concomitant]
     Dosage: 24 MILLIGRAM
     Route: 048
     Dates: start: 20110111, end: 20110307
  53. ZYPREXA [Concomitant]
     Dosage: 5 MILLIGRAM
     Route: 048
     Dates: start: 20101225, end: 20101225
  54. LAXOBERON [Concomitant]
     Dosage: 15 DROPS
     Route: 048
     Dates: start: 20101226, end: 20110105
  55. LYRICA [Concomitant]
     Dosage: 75 MILLIGRAM
     Route: 048
     Dates: start: 20101227, end: 20110109
  56. KENEI G [Concomitant]
     Dosage: 60 MILLILITER
     Route: 065
     Dates: start: 20110118, end: 20110118
  57. DEXAMETHASONE [Concomitant]
     Indication: REFRACTORY CANCER
     Dosage: 132 MILLIGRAM
     Route: 041
     Dates: start: 20110201, end: 20110211
  58. MUCODYNE [Concomitant]
     Indication: PROPHYLAXIS
     Dosage: 1500 MILLIGRAM
     Route: 048
     Dates: start: 20110111, end: 20110307
  59. MUCOSOLVAN [Concomitant]
     Indication: PROPHYLAXIS
     Dosage: 45 MILLIGRAM
     Route: 048
     Dates: start: 20110111, end: 20110307
  60. REVLIMID [Suspect]
     Indication: MULTIPLE MYELOMA
     Dosage: 25 MILLIGRAM
     Route: 048
     Dates: start: 20101221, end: 20101221
  61. REVLIMID [Suspect]
     Dosage: 10 MILLIGRAM
     Route: 048
     Dates: start: 20101229, end: 20110104
  62. ACYCRIL [Concomitant]
     Indication: PROPHYLAXIS
     Dosage: 500 MILLIGRAM
     Route: 041
     Dates: start: 20101224, end: 20110110
  63. ZOSYN [Concomitant]
     Indication: PROPHYLAXIS
     Dosage: 2.25 GRAM
     Route: 041
     Dates: start: 20101224, end: 20101229
  64. ALLOPURINOL [Concomitant]
     Dosage: 100 MILLIGRAM
     Route: 048
     Dates: start: 20101221, end: 20110110
  65. TETRAMIDE [Concomitant]
     Dosage: 10 MILLIGRAM
     Route: 048
     Dates: start: 20101222, end: 20101222
  66. MAGNESIUM OXIDE [Concomitant]
     Dosage: 2.01 GRAM
     Route: 048
     Dates: start: 20110111, end: 20110307
  67. SULFAMETHOXAZOLE [Concomitant]
     Indication: PROPHYLAXIS
     Dosage: 1 GRAM
     Route: 048
     Dates: start: 20110111, end: 20110307

REACTIONS (11)
  - GASTRITIS [None]
  - RENAL DISORDER [None]
  - ENCEPHALITIS VIRAL [None]
  - NEUTROPENIA [None]
  - LIVER FUNCTION TEST ABNORMAL [None]
  - DISEASE COMPLICATION [None]
  - VASCULAR ENCEPHALOPATHY [None]
  - LEUKOENCEPHALOPATHY [None]
  - CYST [None]
  - DEMYELINATION [None]
  - ENCEPHALITIS [None]
